FAERS Safety Report 14191575 (Version 1)
Quarter: 2017Q4

REPORT INFORMATION
  Report Type: Spontaneous
  Country: US (occurrence: US)
  Receive Date: 20171115
  Receipt Date: 20171115
  Transmission Date: 20180321
  Serious: No
  Sender: FDA-Public Use
  Company Number: US-BIOGEN-2014BI027851

PATIENT
  Sex: Male

DRUGS (6)
  1. TYSABRI [Suspect]
     Active Substance: NATALIZUMAB
     Route: 042
     Dates: start: 20120217, end: 20120601
  2. TYSABRI [Suspect]
     Active Substance: NATALIZUMAB
     Route: 042
     Dates: start: 20110527, end: 20110819
  3. TECFIDERA [Concomitant]
     Active Substance: DIMETHYL FUMARATE
     Indication: MULTIPLE SCLEROSIS
     Route: 048
  4. TYSABRI [Suspect]
     Active Substance: NATALIZUMAB
     Indication: MULTIPLE SCLEROSIS
     Dosage: INFUSED OVER 1 HOUR
     Route: 042
     Dates: start: 2010, end: 2011
  5. TECFIDERA [Concomitant]
     Active Substance: DIMETHYL FUMARATE
     Route: 048
  6. TECFIDERA [Concomitant]
     Active Substance: DIMETHYL FUMARATE
     Route: 048

REACTIONS (2)
  - Drug administered to patient of inappropriate age [Unknown]
  - Multiple sclerosis relapse [Unknown]
